FAERS Safety Report 7325060-X (Version None)
Quarter: 2011Q1

REPORT INFORMATION
  Report Type: 
  Country: None (occurrence: None)
  Receive Date: 20110217
  Receipt Date: 20110203
  Transmission Date: 20110831
  Serious: Yes (Hospitalization)
  Sender: FDA-Public Use
  Company Number: USA/USA/11/0017420

PATIENT
  Age: 50 Year
  Sex: Male

DRUGS (3)
  1. AMLODIPINE BESYLATE [Suspect]
     Indication: HYPERTENSION
     Dosage: 500 MG, TOTAL
  2. LISINOPRIL [Suspect]
     Indication: HYPERTENSION
     Dosage: 1 GM, TOTAL
  3. HYDROCHLOROTHIAZIDE [Suspect]
     Indication: HYPERTENSION
     Dosage: 625 MG, TOTAL

REACTIONS (6)
  - MULTIPLE DRUG OVERDOSE INTENTIONAL [None]
  - SUICIDE ATTEMPT [None]
  - RESPIRATORY FAILURE [None]
  - EJECTION FRACTION [None]
  - PULMONARY FUNCTION TEST DECREASED [None]
  - SEPSIS [None]
